FAERS Safety Report 5810565-0 (Version None)
Quarter: 2008Q3

REPORT INFORMATION
  Report Type: 
  Country: None (occurrence: None)
  Receive Date: 20080709
  Receipt Date: 20080625
  Transmission Date: 20090109
  Serious: Yes (Other)
  Sender: FDA-Public Use
  Company Number: VNL_00969_2008

PATIENT
  Sex: Female

DRUGS (11)
  1. APO-GO (APO-GO AMPOULES 10 MG/ML - APOMORPHINE HYDROCHLORIDE) (NOT SPE [Suspect]
     Indication: PARKINSON'S DISEASE
     Dosage: 5 MG PER  HOUR FOR 11 MONTHS 20 HOURS DAILY SUBCUTANEOUS
     Route: 058
     Dates: start: 20061107, end: 20071001
  2. APO-GO (APO-GO PFS 5 MG/ML SOLUTION FOR INFUSION IN PRE-FILLED SYRINGE [Suspect]
     Indication: PARKINSON'S DISEASE
     Dosage: 5 MG PER HOUR FOR 5 MONTHS 20 HOURS DAILY SUBCUTANEOUS
     Route: 058
     Dates: start: 20071001, end: 20080319
  3. NEUPRO [Suspect]
     Indication: PARKINSON'S DISEASE
     Dosage: 6 MG TRANSDERMAL
     Route: 062
     Dates: start: 20070816, end: 20080316
  4. SINEMET CR [Concomitant]
  5. MADOPAR /00349201/ [Concomitant]
  6. COMTESS [Concomitant]
  7. GLUCOPHAGE [Concomitant]
  8. MOTILIUM /00498201/ [Concomitant]
  9. PRAVASTATIN [Concomitant]
  10. DIAMICRON [Concomitant]
  11. AMLODIPINE [Concomitant]

REACTIONS (7)
  - APATHY [None]
  - ERYTHEMA [None]
  - INFLAMMATION [None]
  - INFUSION SITE CELLULITIS [None]
  - INFUSION SITE FIBROSIS [None]
  - PAIN [None]
  - SKIN NODULE [None]
